FAERS Safety Report 5694053-0 (Version None)
Quarter: 2008Q2

REPORT INFORMATION
  Report Type: 
  Country: None (occurrence: None)
  Receive Date: 20080403
  Receipt Date: 20080326
  Transmission Date: 20081010
  Serious: Yes (Hospitalization)
  Sender: FDA-Public Use
  Company Number: FR-MERCK-0803FRA00064

PATIENT
  Age: 25 Year
  Sex: Male
  Weight: 72 kg

DRUGS (6)
  1. EMEND [Suspect]
     Indication: PROPHYLAXIS OF NAUSEA AND VOMITING
     Route: 048
     Dates: start: 20071217, end: 20071217
  2. EMEND [Suspect]
     Route: 048
     Dates: start: 20071218, end: 20071221
  3. BLEOMYCIN [Concomitant]
     Indication: TESTIS CANCER
     Route: 042
     Dates: start: 20071217, end: 20071223
  4. ETOPOSIDE [Concomitant]
     Indication: TESTIS CANCER
     Route: 042
     Dates: start: 20071217, end: 20071221
  5. CISPLATIN [Concomitant]
     Indication: TESTIS CANCER
     Route: 042
     Dates: start: 20071217, end: 20071221
  6. PREDNISOLONE SODIUM METASULFOBENZOATE [Concomitant]
     Route: 048
     Dates: start: 20071217, end: 20071221

REACTIONS (1)
  - CYTOLYTIC HEPATITIS [None]
